FAERS Safety Report 19196038 (Version 1)
Quarter: 2021Q2

REPORT INFORMATION
  Report Type: Report from Study
  Country: FR (occurrence: FR)
  Receive Date: 20210429
  Receipt Date: 20210429
  Transmission Date: 20210717
  Serious: Yes (Hospitalization, Other)
  Sender: FDA-Public Use
  Company Number: FR-KYOWAKIRIN-2021BKK006837

PATIENT

DRUGS (1)
  1. POTELIGEO [Suspect]
     Active Substance: MOGAMULIZUMAB-KPKC
     Indication: CUTANEOUS T-CELL LYMPHOMA STAGE I
     Dosage: UNK
     Route: 042
     Dates: start: 20141016, end: 20150109

REACTIONS (9)
  - Oedema [Recovered/Resolved]
  - Myalgia [Unknown]
  - Hypoproteinaemia [Recovered/Resolved]
  - Ichthyosis [Recovered/Resolved]
  - Hypoproteinaemia [Recovered/Resolved]
  - Rash [Recovered/Resolved]
  - Oedema [Recovered/Resolved]
  - Hypoalbuminaemia [Recovered/Resolved]
  - Rash [Recovered/Resolved]

NARRATIVE: CASE EVENT DATE: 20141024
